FAERS Safety Report 18281033 (Version 1)
Quarter: 2020Q3

REPORT INFORMATION
  Report Type: Spontaneous
  Country: US (occurrence: US)
  Receive Date: 20200918
  Receipt Date: 20200918
  Transmission Date: 20201103
  Serious: No
  Sender: FDA-Public Use
  Company Number: US-SA-2020SA248369

PATIENT

DRUGS (2)
  1. ADACEL TDAP [Suspect]
     Active Substance: TETANUS TOXOID, REDUCED DIPHTHERIA TOXOID AND ACELLULAR PERTUSSIS VACCINE ADSORBED, TDAP
     Indication: IMMUNISATION
     Dosage: .5 ML
     Route: 023
     Dates: start: 20200909, end: 20200909
  2. TUBERCULIN PPD [Suspect]
     Active Substance: TUBERCULIN PURIFIED PROTEIN DERIVATIVE
     Indication: TUBERCULIN TEST
     Dosage: UNK
     Route: 023

REACTIONS (4)
  - Vaccination site swelling [Unknown]
  - Wrong product administered [Unknown]
  - Pain in extremity [Unknown]
  - Vaccination site ulcer [Unknown]

NARRATIVE: CASE EVENT DATE: 20200909
